FAERS Safety Report 11798535 (Version 1)
Quarter: 2015Q4

REPORT INFORMATION
  Report Type: Spontaneous
  Country: US (occurrence: US)
  Receive Date: 20151203
  Receipt Date: 20151203
  Transmission Date: 20160305
  Serious: Yes (Other)
  Sender: FDA-Public Use
  Company Number: US-REGENERON PHARMACEUTICALS, INC.-2015-11683

PATIENT

DRUGS (11)
  1. ADCIRCA [Concomitant]
     Active Substance: TADALAFIL
     Dosage: 20 MG MILLIGRAM(S), BID
  2. MONTELUKAST [Concomitant]
     Active Substance: MONTELUKAST SODIUM
  3. ASPIRIN                            /00002701/ [Concomitant]
     Active Substance: ASPIRIN
     Dosage: 81 MG MILLIGRAM(S), QD
  4. EYLEA [Suspect]
     Active Substance: AFLIBERCEPT
     Indication: NEOVASCULAR AGE-RELATED MACULAR DEGENERATION
     Dosage: 0.5 ML MILLILITRE(S), BOTH EYES (OU) EVERY 4-6 WEEKS
     Route: 031
     Dates: start: 20141205
  5. EYLEA [Suspect]
     Active Substance: AFLIBERCEPT
     Dosage: 0.5 ML MILLILITRE(S), LEFT EYE (OS) EVERY 4-6 WEEKS LEFT EYE, (OS)
     Route: 031
     Dates: start: 20150622, end: 20150622
  6. BUMETANIDE. [Concomitant]
     Active Substance: BUMETANIDE
     Dosage: 1 MG MILLIGRAM(S), UNK
  7. LISINOPRIL. [Concomitant]
     Active Substance: LISINOPRIL
     Dosage: 10 MG MILLIGRAM(S), UNK
  8. BYSTOLIC [Concomitant]
     Active Substance: NEBIVOLOL HYDROCHLORIDE
     Dosage: 5 MG MILLIGRAM(S), QD
  9. COENZYME Q10 [Concomitant]
     Active Substance: UBIDECARENONE
  10. EYLEA [Suspect]
     Active Substance: AFLIBERCEPT
     Dosage: 0.5 ML MILLILITRE(S), LEFT EYE (OS) EVERY 4-6 WEEKSLEFT EYE, (OS)
     Route: 031
     Dates: start: 20150415, end: 20150415
  11. VITAMIN D                          /00107901/ [Concomitant]
     Active Substance: ERGOCALCIFEROL
     Dosage: 50000 IU INTERNATIONAL UNIT(S), UNK

REACTIONS (3)
  - Visual acuity reduced [Unknown]
  - Iritis [Recovered/Resolved]
  - Endophthalmitis [Recovered/Resolved]

NARRATIVE: CASE EVENT DATE: 20150417
